FAERS Safety Report 14226749 (Version 2)
Quarter: 2019Q4

REPORT INFORMATION
  Report Type: Spontaneous
  Country: SE (occurrence: SE)
  Receive Date: 20171127
  Receipt Date: 20191010
  Transmission Date: 20200122
  Serious: Yes (Other)
  Sender: FDA-Public Use
  Company Number: SE-TEVA-2017-SE-826102

PATIENT
  Age: 59 Year
  Sex: Female

DRUGS (1)
  1. ATENOLOL ACTAVIS [Suspect]
     Active Substance: ATENOLOL
     Route: 048

REACTIONS (2)
  - Product substitution issue [Recovered/Resolved]
  - Atrial fibrillation [Recovered/Resolved]

NARRATIVE: CASE EVENT DATE: 201707
